FAERS Safety Report 15725568 (Version 6)
Quarter: 2019Q2

REPORT INFORMATION
  Report Type: Spontaneous
  Country: PL (occurrence: PL)
  Receive Date: 20181215
  Receipt Date: 20190618
  Transmission Date: 20190711
  Serious: Yes (Other)
  Sender: FDA-Public Use
  Company Number: PL-ACCORD-096258

PATIENT
  Age: 70 Year
  Sex: Female

DRUGS (11)
  1. CLOZAPINE. [Suspect]
     Active Substance: CLOZAPINE
     Indication: PRODUCT USED FOR UNKNOWN INDICATION
     Dosage: UNK
     Route: 065
  2. AMANTADINE. [Interacting]
     Active Substance: AMANTADINE HYDROCHLORIDE
     Indication: PARKINSON^S DISEASE
     Dosage: UNK,IN THE MORNING AND AT NOON?ALSO RECEIVED 200 MG(1 DAYS INTERVAL)
     Route: 065
  3. RASAGILINE/RASAGILINE MESYLATE [Interacting]
     Active Substance: RASAGILINE MESYLATE
     Indication: PARKINSON^S DISEASE
     Dosage: 1 MG,QD
     Route: 065
  4. HYDROXYZINE [Suspect]
     Active Substance: HYDROXYZINE HYDROCHLORIDE
     Indication: ANXIETY DISORDER
     Dosage: 25 MG AD HOC ADMINISTERED DUE TO ANXIETY DISORDERS
     Route: 065
  5. CARBIDOPA/LEVODOPA [Interacting]
     Active Substance: CARBIDOPA\LEVODOPA
     Indication: PARKINSON^S DISEASE
     Dosage: 100/25 MG: AT 7.00, 11.00, 15.00 AND 19.00
     Route: 065
  6. RIVASTIGMINE/RIVASTIGMINE TARTRATE [Interacting]
     Active Substance: RIVASTIGMINE
     Indication: PRODUCT USED FOR UNKNOWN INDICATION
     Dosage: UNK
     Route: 065
  7. AMITRIPTYLINE [Interacting]
     Active Substance: AMITRIPTYLINE
     Indication: SLEEP DISORDER
     Dosage: 25 MG,QD
     Route: 065
  8. ROPINIROLE/ROPINIROLE HYDROCHLORIDE [Interacting]
     Active Substance: ROPINIROLE HYDROCHLORIDE
     Indication: PARKINSON^S DISEASE
     Dosage: 2 MG,QD?ALSO RECEIVED 6 MG AND 8 MG
     Route: 048
  9. OXYBUTYNIN/OXYBUTYNIN HYDROCHLORIDE [Interacting]
     Active Substance: OXYBUTYNIN
     Indication: URINARY INCONTINENCE
     Dosage: 15 MG,QD?ALSO RECEIVED 15 MG
     Route: 065
  10. BIPERIDEN [Interacting]
     Active Substance: BIPERIDEN
     Indication: PARKINSON^S DISEASE
     Dosage: 4 MG,QD
     Route: 065
  11. AMOXICILLIN. [Concomitant]
     Active Substance: AMOXICILLIN
     Indication: PNEUMONIA
     Dosage: UNK
     Route: 065

REACTIONS (18)
  - Parkinson^s disease [Unknown]
  - Pneumonia [Recovering/Resolving]
  - Dementia [Unknown]
  - White blood cell count increased [Unknown]
  - Psychotic symptom [Unknown]
  - Hallucination, visual [Recovered/Resolved]
  - Mental impairment [Unknown]
  - On and off phenomenon [Unknown]
  - Bradykinesia [Unknown]
  - Leukocytosis [Unknown]
  - Musculoskeletal stiffness [Unknown]
  - Neutrophil count increased [Unknown]
  - Drug interaction [Unknown]
  - Hallucinations, mixed [Recovered/Resolved]
  - Cerebral atrophy [Unknown]
  - Anxiety [Unknown]
  - Resting tremor [Unknown]
  - C-reactive protein increased [Unknown]
